FAERS Safety Report 17677686 (Version 3)
Quarter: 2020Q3

REPORT INFORMATION
  Report Type: Report from Study
  Country: US (occurrence: US)
  Receive Date: 20200416
  Receipt Date: 20200805
  Transmission Date: 20201102
  Serious: Yes (Death, Other)
  Sender: FDA-Public Use
  Company Number: US-GILEAD-2020-0459384

PATIENT
  Age: 35 Year
  Sex: Male
  Weight: 57.3 kg

DRUGS (4)
  1. AXICABTAGENE CILOLEUCEL [Suspect]
     Active Substance: AXICABTAGENE CILOLEUCEL
     Indication: NON-HODGKIN^S LYMPHOMA
     Dosage: 130 ML, ONCE
     Route: 042
     Dates: start: 20200303, end: 20200303
  2. FLUDARABINE [Suspect]
     Active Substance: FLUDARABINE PHOSPHATE
     Indication: BONE MARROW CONDITIONING REGIMEN
     Dosage: 1 DOSAGE FORM, QD; ^30^
     Route: 042
     Dates: start: 20200227, end: 20200229
  3. CYCLOPHOSPHAMIDE. [Suspect]
     Active Substance: CYCLOPHOSPHAMIDE
     Indication: BONE MARROW CONDITIONING REGIMEN
     Dosage: 1 DOSAGE FORM, QD; ^500^
     Route: 042
     Dates: start: 20200227, end: 20200229
  4. ACYCLOVIR [ACICLOVIR] [Concomitant]
     Active Substance: ACYCLOVIR
     Dosage: 200,MG,TWICE DAILY
     Route: 048
     Dates: start: 20191027, end: 20200527

REACTIONS (2)
  - B-cell lymphoma [Fatal]
  - Kaposi^s sarcoma [Unknown]

NARRATIVE: CASE EVENT DATE: 20200407
